FAERS Safety Report 12888534 (Version 4)
Quarter: 2017Q2

REPORT INFORMATION
  Report Type: Spontaneous
  Country: US (occurrence: US)
  Receive Date: 20161027
  Receipt Date: 20170410
  Transmission Date: 20170830
  Serious: Yes (Other)
  Sender: FDA-Public Use
  Company Number: US-PFIZER INC-2016498994

PATIENT
  Age: 67 Year
  Sex: Male
  Weight: 97.52 kg

DRUGS (18)
  1. LEFLUNOMIDE. [Concomitant]
     Active Substance: LEFLUNOMIDE
     Indication: RHEUMATOID ARTHRITIS
     Dosage: 20 MG, DAILY
     Dates: start: 20101130
  2. PREDNISONE. [Concomitant]
     Active Substance: PREDNISONE
     Dosage: 5 MG, DAILY
     Dates: start: 20160923
  3. VIBRA-TABS [Concomitant]
     Active Substance: DOXYCYCLINE HYCLATE
     Indication: EYE INFLAMMATION
     Dosage: 100 MG, 2X/DAY
     Dates: start: 20150519
  4. HYDROCODONE BITARTRATE AND ACETAMINOPHEN [Concomitant]
     Active Substance: ACETAMINOPHEN\HYDROCODONE BITARTRATE
     Dosage: 10/325MG, AS NEEDED
     Dates: start: 20160812
  5. FISH OIL [Concomitant]
     Active Substance: FISH OIL
     Indication: DRY EYE
     Dosage: UNK UNK, 4X/DAY
     Dates: start: 20140611
  6. FOLIC ACID. [Concomitant]
     Active Substance: FOLIC ACID
     Dosage: 1 MG, DAILY
     Dates: start: 199803
  7. XELJANZ [Suspect]
     Active Substance: TOFACITINIB CITRATE
     Indication: RHEUMATOID ARTHRITIS
     Dosage: 5 MG, 2X/DAY
     Route: 048
     Dates: start: 20150321
  8. VALTREX [Concomitant]
     Active Substance: VALACYCLOVIR HYDROCHLORIDE
     Indication: EYE INFECTION
     Dosage: 500 MG, DAILY
     Dates: start: 20150810
  9. OXYBUTYNINE [Concomitant]
     Active Substance: OXYBUTYNIN CHLORIDE
     Indication: HYPERTONIC BLADDER
     Dosage: 10 MG, DAILY
     Dates: start: 20150614
  10. PILOCARPINE. [Concomitant]
     Active Substance: PILOCARPINE
     Indication: DRY MOUTH
     Dosage: 5 MG, 4X/DAY
     Dates: start: 20140530
  11. GABAPENTIN. [Concomitant]
     Active Substance: GABAPENTIN
     Dosage: 300 MG, 3X/DAY
     Dates: start: 20160914
  12. OMEPRAZOLE. [Concomitant]
     Active Substance: OMEPRAZOLE
     Indication: GASTRIC ULCER
     Dosage: 40 MG, DAILY
     Dates: start: 20120607
  13. FINASTERIDE. [Concomitant]
     Active Substance: FINASTERIDE
     Indication: PROSTATE TENDERNESS
     Dosage: 5 MG, DAILY
     Dates: start: 20090722
  14. LOSARTAN POTASICO [Concomitant]
     Active Substance: LOSARTAN
     Indication: BLOOD PRESSURE MEASUREMENT
     Dosage: 50 MG, DAILY
     Dates: start: 20150617
  15. LEVOTHYROXINE. [Concomitant]
     Active Substance: LEVOTHYROXINE
     Indication: HYPOTHYROIDISM
     Dosage: 112 UG, 2X/DAY
  16. ERYTHROMYCIN. [Concomitant]
     Active Substance: ERYTHROMYCIN
     Indication: DRY EYE
     Dosage: UNK UNK, 1X/DAY, (BEDTIME)
     Dates: start: 20160802
  17. MIRAPEX [Concomitant]
     Active Substance: PRAMIPEXOLE DIHYDROCHLORIDE
     Indication: RESTLESS LEGS SYNDROME
     Dosage: 0.25 MG, UNK
     Dates: start: 20160418
  18. HYDRALAZINE [Concomitant]
     Active Substance: HYDRALAZINE HYDROCHLORIDE
     Indication: BLOOD PRESSURE MEASUREMENT
     Dosage: 25 MG, 2X/DAY
     Dates: start: 20120604

REACTIONS (1)
  - Ulcerative keratitis [Recovered/Resolved]

NARRATIVE: CASE EVENT DATE: 2016
